FAERS Safety Report 9555395 (Version 1)
Quarter: 2013Q3

REPORT INFORMATION
  Report Type: Spontaneous
  Country: US (occurrence: None)
  Receive Date: 20130816
  Receipt Date: 20130816
  Transmission Date: 20140515
  Serious: No
  Sender: FDA-Public Use
  Company Number: US-012096

PATIENT
  Sex: Female

DRUGS (1)
  1. PICO-SALAX (NOT SPECIFIED) [Suspect]
     Indication: BOWEL PREPARATION
     Dosage: ONE PACKET @6PM ORAL
     Route: 048
     Dates: start: 20130619, end: 20130619

REACTIONS (7)
  - Chills [None]
  - Pyrexia [None]
  - Malaise [None]
  - Diarrhoea [None]
  - Vomiting [None]
  - Abdominal pain [None]
  - Nausea [None]
